FAERS Safety Report 9748302 (Version 2)
Quarter: 2013Q4

REPORT INFORMATION
  Report Type: Spontaneous
  Country: IT (occurrence: None)
  Receive Date: 20131206
  Receipt Date: 20131218
  Transmission Date: 20140711
  Serious: Yes (Hospitalization)
  Sender: FDA-Public Use
  Company Number: SYM-2013-13564

PATIENT
  Age: 72 Year
  Sex: Male

DRUGS (1)
  1. DILTIAZEM HYDROCHLORIDE [Suspect]
     Indication: TACHYCARDIA
     Route: 048
     Dates: start: 20131015, end: 20131111

REACTIONS (2)
  - Dermatitis [None]
  - Urticaria [None]
